FAERS Safety Report 10739877 (Version 1)
Quarter: 2015Q1

REPORT INFORMATION
  Report Type: Spontaneous
  Country: US (occurrence: US)
  Receive Date: 20150127
  Receipt Date: 20150127
  Transmission Date: 20150721
  Serious: Yes (Death, Other)
  Sender: FDA-Public Use
  Company Number: US-009507513-1501USA007652

PATIENT
  Age: 47 Year
  Sex: Male

DRUGS (4)
  1. ELAVIL [Suspect]
     Active Substance: AMITRIPTYLINE HYDROCHLORIDE
     Route: 048
  2. ALCOHOL. [Suspect]
     Active Substance: ALCOHOL
     Route: 048
  3. BUPRENORPHINE HYDROCHLORIDE (+) NALOXONE HYDROCHLORIDE [Suspect]
     Active Substance: BUPRENORPHINE HYDROCHLORIDE\NALOXONE HYDROCHLORIDE
     Route: 060
  4. ALPRAZOLAM. [Suspect]
     Active Substance: ALPRAZOLAM
     Route: 048

REACTIONS (3)
  - Completed suicide [Fatal]
  - Blood alcohol increased [None]
  - Toxicity to various agents [Fatal]
